FAERS Safety Report 23683180 (Version 1)
Quarter: 2024Q1

REPORT INFORMATION
  Report Type: Spontaneous
  Country: MY (occurrence: MY)
  Receive Date: 20240328
  Receipt Date: 20240328
  Transmission Date: 20240410
  Serious: Yes (Hospitalization)
  Sender: FDA-Public Use
  Company Number: MY-BoehringerIngelheim-2024-BI-015858

PATIENT
  Age: 3 Decade
  Sex: Female

DRUGS (2)
  1. METALYSE [Suspect]
     Active Substance: TENECTEPLASE
     Indication: Pulmonary embolism
     Route: 065
     Dates: start: 20240314
  2. NEXIUM [Concomitant]
     Active Substance: ESOMEPRAZOLE MAGNESIUM
     Indication: Product used for unknown indication

REACTIONS (5)
  - Pulmonary embolism [Unknown]
  - Carotid artery thrombosis [Unknown]
  - Cerebrovascular accident [Unknown]
  - Off label use [Unknown]
  - Product quality issue [Unknown]
